FAERS Safety Report 9013974 (Version 1)
Quarter: 2013Q1

REPORT INFORMATION
  Report Type: Spontaneous
  Country: US (occurrence: None)
  Receive Date: 20130109
  Receipt Date: 20130109
  Transmission Date: 20140127
  Serious: Yes (Hospitalization)
  Sender: FDA-Public Use
  Company Number: None

PATIENT
  Age: 6 Year
  Sex: Female
  Weight: 28.12 kg

DRUGS (3)
  1. POLYETHYLENE GLYCOL 3350 (MIRALAX) [Suspect]
     Route: 048
     Dates: start: 20110901, end: 20120301
  2. POLYETHYLENE GLYCOL 3350 (MIRALAX) [Suspect]
     Route: 048
     Dates: start: 20110901, end: 20120301
  3. POLYETHYLENE GLYCOL 3350 (MIRALAX) [Suspect]
     Indication: CONSTIPATION
     Route: 048
     Dates: start: 20110901, end: 20120301

REACTIONS (21)
  - Malaise [None]
  - Dyspnoea [None]
  - Petechiae [None]
  - Hypophagia [None]
  - Choking [None]
  - Abdominal pain [None]
  - Burning sensation [None]
  - Drug ineffective [None]
  - Cyanosis [None]
  - Insomnia [None]
  - Back pain [None]
  - Paraesthesia [None]
  - Pruritus [None]
  - Enuresis [None]
  - Anxiety [None]
  - Urinary tract disorder [None]
  - Mental disorder [None]
  - Emotional disorder [None]
  - Epistaxis [None]
  - Pallor [None]
  - Rash [None]
